FAERS Safety Report 8954692 (Version 1)
Quarter: 2012Q4

REPORT INFORMATION
  Report Type: 
  Country: US (occurrence: US)
  Receive Date: 20121207
  Receipt Date: 20121207
  Transmission Date: 20130627
  Serious: No
  Sender: FDA-Public Use
  Company Number: US-GLAXOSMITHKLINE-A0973874A

PATIENT
  Sex: Male

DRUGS (1)
  1. AVANDAMET [Suspect]
     Indication: TYPE 2 DIABETES MELLITUS
     Route: 065

REACTIONS (3)
  - Blood glucose increased [Recovering/Resolving]
  - Decreased appetite [Unknown]
  - Ill-defined disorder [Unknown]
